FAERS Safety Report 8298420 (Version 3)
Quarter: 2012Q4

REPORT INFORMATION
  Report Type: 
  Country: US (occurrence: US)
  Receive Date: 20111219
  Receipt Date: 20120913
  Transmission Date: 20130627
  Serious: No
  Sender: FDA-Public Use
  Company Number: US-ASTRAZENECA-2011SE51778

PATIENT
  Age: 56 Year
  Sex: Male

DRUGS (4)
  1. CRESTOR [Suspect]
     Indication: ANGINA PECTORIS
     Route: 048
  2. CRESTOR [Suspect]
     Indication: MYOCARDIAL INFARCTION
     Route: 048
  3. COREG [Suspect]
     Route: 065
     Dates: end: 201104
  4. BLOOD GLUCOSE MEDICATION [Concomitant]

REACTIONS (8)
  - Diverticulitis [Unknown]
  - Vomiting [Unknown]
  - Food intolerance [Unknown]
  - Weight decreased [Unknown]
  - Pain [Unknown]
  - Abdominal pain [Unknown]
  - Off label use [Unknown]
  - Drug ineffective for unapproved indication [Unknown]
